FAERS Safety Report 16409647 (Version 4)
Quarter: 2019Q4

REPORT INFORMATION
  Report Type: Spontaneous
  Country: US (occurrence: US)
  Receive Date: 20190610
  Receipt Date: 20191122
  Transmission Date: 20200122
  Serious: No
  Sender: FDA-Public Use
  Company Number: US-PFIZER INC-2018488785

PATIENT
  Age: 67 Year
  Sex: Female
  Weight: 57.61 kg

DRUGS (2)
  1. SKELAXIN [Suspect]
     Active Substance: METAXALONE
     Indication: CHRONIC DISEASE
     Dosage: UNK
     Dates: start: 1990
  2. SKELAXIN [Suspect]
     Active Substance: METAXALONE
     Indication: MARFAN^S SYNDROME
     Dosage: 800 MG, AS NEEDED (THREE TIMES DAILY AS NEEDED)
     Route: 048

REACTIONS (2)
  - Off label use [Unknown]
  - Product use in unapproved indication [Unknown]
